FAERS Safety Report 15340787 (Version 1)
Quarter: 2018Q3

REPORT INFORMATION
  Report Type: Spontaneous
  Country: US (occurrence: US)
  Receive Date: 20180831
  Receipt Date: 20180831
  Transmission Date: 20181010
  Serious: Yes (Other)
  Sender: FDA-Public Use
  Company Number: US-SA-2018SA094636

PATIENT
  Age: 49 Year
  Sex: Female
  Weight: 90 kg

DRUGS (2)
  1. TAXOTERE [Suspect]
     Active Substance: DOCETAXEL
     Indication: BREAST CANCER FEMALE
     Dosage: 198 MG, Q3W
     Route: 042
     Dates: start: 20111007, end: 20111007
  2. TAXOTERE [Suspect]
     Active Substance: DOCETAXEL
     Dosage: 198 MG, Q3W
     Route: 042
     Dates: start: 20120308, end: 20120308

REACTIONS (1)
  - Alopecia [Recovering/Resolving]

NARRATIVE: CASE EVENT DATE: 20111107
